FAERS Safety Report 6451104-3 (Version None)
Quarter: 2009Q4

REPORT INFORMATION
  Report Type: 
  Country: None (occurrence: None)
  Receive Date: 20091123
  Receipt Date: 20091111
  Transmission Date: 20100525
  Serious: Yes (Other)
  Sender: FDA-Public Use
  Company Number: US-PFIZER INC-2009298228

PATIENT
  Sex: Female
  Weight: 45.359 kg

DRUGS (3)
  1. XANAX [Suspect]
     Indication: ANXIETY
  2. INDOMETHACIN [Concomitant]
  3. ADVIL [Concomitant]

REACTIONS (9)
  - BACK INJURY [None]
  - CARTILAGE INJURY [None]
  - CONVULSION [None]
  - DRUG INEFFECTIVE [None]
  - FALL [None]
  - INCORRECT DOSE ADMINISTERED [None]
  - INSOMNIA [None]
  - LACK OF SPONTANEOUS SPEECH [None]
  - THYROID DISORDER [None]
